FAERS Safety Report 24197371 (Version 1)
Quarter: 2024Q3

REPORT INFORMATION
  Report Type: Spontaneous
  Country: US (occurrence: US)
  Receive Date: 20240810
  Receipt Date: 20240810
  Transmission Date: 20241016
  Serious: Yes (Other)
  Sender: JIANGSU HANSOH PHARMACEUTICAL
  Company Number: US-Jiangsu Hansoh Pharmaceutical Co., Ltd-2160266

PATIENT
  Age: 57 Year
  Sex: Female

DRUGS (3)
  1. GEMCITABINE HYDROCHLORIDE [Suspect]
     Active Substance: GEMCITABINE HYDROCHLORIDE
     Indication: Bile duct cancer stage III
  2. CISPLATIN [Suspect]
     Active Substance: CISPLATIN
  3. DURVALUMAB [Suspect]
     Active Substance: DURVALUMAB

REACTIONS (7)
  - Hypokalaemia [Recovering/Resolving]
  - Off label use [Unknown]
  - Hypomagnesaemia [Recovering/Resolving]
  - Decreased appetite [Unknown]
  - Nausea [Unknown]
  - Asthenia [Unknown]
  - Fatigue [Unknown]
